FAERS Safety Report 8018632 (Version 5)
Quarter: 2012Q4

REPORT INFORMATION
  Report Type: Report from Study
  Country: RO (occurrence: RO)
  Receive Date: 20110701
  Receipt Date: 20121026
  Transmission Date: 20130627
  Serious: Yes (Hospitalization)
  Sender: FDA-Public Use
  Company Number: RO-ROCHE-785067

PATIENT
  Age: 60 Year
  Sex: Female
  Weight: 74.5 kg

DRUGS (10)
  1. TRASTUZUMAB [Suspect]
     Indication: BREAST CANCER
     Dosage: LOADING DOSE
     Route: 042
  2. TRASTUZUMAB [Suspect]
     Dosage: MAINTENANCE DOSE, TOTAL DOSE: 450 MG, FORM: VIALS, LAST DOSE PRIOR TO SAE: 19 APR 2011, DRUG HELD.
     Route: 042
  3. TRASTUZUMAB [Suspect]
     Dosage: RESTARTED
     Route: 042
  4. DOCETAXEL [Suspect]
     Indication: BREAST CANCER
     Dosage: DOSE LEVEL: 100 MG/M2, FORM: VIALS, LAST DOSE PRIOR TO SAE: 02 NOV 2010
     Route: 042
  5. 5-FLUOROURACIL [Suspect]
     Indication: BREAST CANCER
     Dosage: LAST DOSE PRIOR TO SAE: 4 JAN 2011, FORM: VIAL, DOSE LEVEL: 600 MG/M2
     Route: 042
  6. EPIRUBICIN [Suspect]
     Indication: BREAST CANCER
     Dosage: LAST DOSE PRIOR TO SAE: 04 JAN 2011, FORM: VIALS, DOSE LEVEL 90 MG/M2
     Route: 042
  7. CYCLOPHOSPHAMIDE [Suspect]
     Indication: BREAST CANCER
     Dosage: LAST DOSE PRIOR TO SAE: 4 JAN 2011, DOSE LEVEL: 600 MG/M2, FORM: VIALS
     Route: 042
  8. PERINDOPRIL [Concomitant]
     Route: 065
  9. AMLODIPINE [Concomitant]
     Route: 065
  10. PHYSIOTENS [Concomitant]
     Route: 065

REACTIONS (1)
  - Myocardial ischaemia [Recovered/Resolved]
